FAERS Safety Report 9604362 (Version 4)
Quarter: 2013Q4

REPORT INFORMATION
  Report Type: Report from Study
  Country: US (occurrence: US)
  Receive Date: 20131008
  Receipt Date: 20131101
  Transmission Date: 20140711
  Serious: Yes (Other)
  Sender: FDA-Public Use
  Company Number: PHEH2013US017299

PATIENT
  Age: 48 Year
  Sex: Female
  Weight: 68.27 kg

DRUGS (10)
  1. GILENYA [Suspect]
     Indication: MULTIPLE SCLEROSIS
     Dosage: 0.5 MG, QD
     Route: 048
     Dates: start: 20130628, end: 20130818
  2. FLUCONAZOLE [Concomitant]
     Dosage: 100 MG, UNK
  3. TRAZODONE [Concomitant]
     Indication: INSOMNIA
     Dosage: 100 MG, QD
     Route: 048
  4. VITAMIN D [Concomitant]
     Indication: VITAMIN D DEFICIENCY
     Dosage: 50000 U, UNK
  5. VITAMIN D [Concomitant]
     Dosage: 1.25 MG, QW
     Route: 048
  6. PROZAC [Concomitant]
     Indication: DEPRESSION
     Dosage: 40 MG, QD
     Route: 048
  7. ANTIVERT [Concomitant]
     Indication: VERTIGO
     Dosage: 12.5 MG, PRN
     Route: 048
  8. PROVIGIL//MODAFINIL [Concomitant]
     Dosage: 200 MG, QD
     Route: 048
  9. ZANAFLEX [Concomitant]
     Dosage: 4 MG, UNK
     Route: 048
  10. NEURONTIN [Concomitant]
     Dosage: 300 MG, UNK
     Route: 048

REACTIONS (5)
  - Haemoglobin decreased [Unknown]
  - Faeces discoloured [Recovered/Resolved]
  - Nausea [Recovered/Resolved]
  - Chest pain [Recovered/Resolved]
  - Diarrhoea [Recovering/Resolving]
